FAERS Safety Report 25157266 (Version 2)
Quarter: 2025Q2

REPORT INFORMATION
  Report Type: Spontaneous
  Country: US (occurrence: US)
  Receive Date: 20250403
  Receipt Date: 20250502
  Transmission Date: 20250716
  Serious: Yes (Hospitalization, Other)
  Sender: COOPERSURGICAL
  Company Number: US-COOPERSURGICAL, INC.-2024CPS001769

PATIENT
  Sex: Female
  Weight: 60.771 kg

DRUGS (1)
  1. PARAGARD T 380A [Suspect]
     Active Substance: COPPER
     Indication: Contraception
     Route: 015
     Dates: start: 20210601, end: 20240524

REACTIONS (9)
  - HELLP syndrome [Recovered/Resolved]
  - Caesarean section [Recovered/Resolved]
  - Polyhydramnios [Recovered/Resolved]
  - Pregnancy with contraceptive device [Recovered/Resolved]
  - Drug ineffective [Unknown]
  - Complication associated with device [Recovered/Resolved]
  - Device issue [Recovered/Resolved]
  - Smear cervix abnormal [Recovered/Resolved]
  - Device dislocation [Recovered/Resolved]

NARRATIVE: CASE EVENT DATE: 20220101
